FAERS Safety Report 7357251-6 (Version None)
Quarter: 2011Q1

REPORT INFORMATION
  Report Type: 
  Country: None (occurrence: None)
  Receive Date: 20110311
  Receipt Date: 20110311
  Transmission Date: 20110831
  Serious: Yes (Hospitalization, Other)
  Sender: FDA-Public Use
  Company Number: None

PATIENT
  Age: 63 Year
  Sex: Male

DRUGS (8)
  1. HYDROCODONE BITARTRATE + ACETAMINOPHEN [Concomitant]
  2. LOPRESSOR [Concomitant]
  3. LEVOTHROID [Concomitant]
  4. OXYCONTIN [Concomitant]
  5. PLAVIX [Concomitant]
  6. REVLIMID [Suspect]
     Indication: ACUTE MYELOID LEUKAEMIA
     Dosage: 25MG 2 CAPSULES DAILY PO
     Route: 048
     Dates: start: 20101201, end: 20110208
  7. LISINOPRIL [Concomitant]
  8. HYDROCORTISONE [Concomitant]

REACTIONS (5)
  - ABSCESS [None]
  - ANAEMIA [None]
  - THROMBOCYTOPENIA [None]
  - NEUTROPENIA [None]
  - INFECTION [None]
